FAERS Safety Report 15942636 (Version 5)
Quarter: 2019Q3

REPORT INFORMATION
  Report Type: Spontaneous
  Country: US (occurrence: US)
  Receive Date: 20190209
  Receipt Date: 20190715
  Transmission Date: 20191004
  Serious: Yes (Hospitalization, Disabling, Other)
  Sender: FDA-Public Use
  Company Number: US-ASTRAZENECA-2018SF26035

PATIENT
  Age: 37 Year
  Sex: Male
  Weight: 72 kg

DRUGS (43)
  1. ALLOPURINOL. [Concomitant]
     Active Substance: ALLOPURINOL
  2. ZOFRAN [Concomitant]
     Active Substance: ONDANSETRON HYDROCHLORIDE
  3. VIREAD [Concomitant]
     Active Substance: TENOFOVIR DISOPROXIL FUMARATE
     Indication: HIV INFECTION
  4. TRAMADOL. [Concomitant]
     Active Substance: TRAMADOL
     Indication: RENAL DISORDER
  5. NEXIUM 24HR [Suspect]
     Active Substance: ESOMEPRAZOLE MAGNESIUM
     Indication: GASTROOESOPHAGEAL REFLUX DISEASE
     Route: 048
  6. PRILOSEC [Suspect]
     Active Substance: OMEPRAZOLE MAGNESIUM
     Indication: GASTROOESOPHAGEAL REFLUX DISEASE
     Route: 048
  7. PREVACID 24 HR [Suspect]
     Active Substance: LANSOPRAZOLE
     Route: 065
  8. CEFDINIR. [Concomitant]
     Active Substance: CEFDINIR
  9. TRIAMCINOLONE [Concomitant]
     Active Substance: TRIAMCINOLONE
  10. PRILOSEC [Suspect]
     Active Substance: OMEPRAZOLE MAGNESIUM
     Indication: GASTROOESOPHAGEAL REFLUX DISEASE
     Route: 048
     Dates: start: 20080101, end: 20180625
  11. ATORVASTATIN [Concomitant]
     Active Substance: ATORVASTATIN
  12. RITONAVIR. [Concomitant]
     Active Substance: RITONAVIR
  13. ONDANSETRON [Concomitant]
     Active Substance: ONDANSETRON
  14. CALCITROL [CALCIUM CARBONATE\ERGOCALCIFEROL\RETINOL] [Concomitant]
     Active Substance: CALCIUM CARBONATE\ERGOCALCIFEROL\RETINOL
  15. ATORVASTATIN [Concomitant]
     Active Substance: ATORVASTATIN
  16. IBUPROFEN. [Concomitant]
     Active Substance: IBUPROFEN
  17. AMOXICILLIN. [Concomitant]
     Active Substance: AMOXICILLIN
     Indication: ANTIBIOTIC PROPHYLAXIS
  18. CARVEDILOL. [Concomitant]
     Active Substance: CARVEDILOL
  19. CALCITRIOL. [Concomitant]
     Active Substance: CALCITRIOL
  20. FOSRENOL [Concomitant]
     Active Substance: LANTHANUM CARBONATE
  21. GENTAMYCIN [Concomitant]
     Active Substance: GENTAMICIN
  22. SENSIPAR [Concomitant]
     Active Substance: CINACALCET HYDROCHLORIDE
  23. REMERON [Concomitant]
     Active Substance: MIRTAZAPINE
  24. PRILOSEC [Suspect]
     Active Substance: OMEPRAZOLE MAGNESIUM
     Indication: GASTROOESOPHAGEAL REFLUX DISEASE
     Dosage: GENERIC
     Route: 065
  25. PRILOSEC OTC [Suspect]
     Active Substance: OMEPRAZOLE MAGNESIUM
     Indication: GASTROOESOPHAGEAL REFLUX DISEASE
     Route: 048
     Dates: start: 20160414
  26. ABACAVIR. [Concomitant]
     Active Substance: ABACAVIR
     Indication: HIV INFECTION
  27. NITROSTAT [Concomitant]
     Active Substance: NITROGLYCERIN
  28. MARINOL [Concomitant]
     Active Substance: DRONABINOL
  29. AMOXICILLIN. [Concomitant]
     Active Substance: AMOXICILLIN
  30. NEXIUM [Suspect]
     Active Substance: ESOMEPRAZOLE MAGNESIUM
     Route: 048
  31. PRILOSEC OTC [Suspect]
     Active Substance: OMEPRAZOLE MAGNESIUM
     Indication: GASTROOESOPHAGEAL REFLUX DISEASE
     Route: 048
     Dates: start: 20080101, end: 20180625
  32. PREVACID [Suspect]
     Active Substance: LANSOPRAZOLE
     Indication: GASTROOESOPHAGEAL REFLUX DISEASE
     Route: 065
     Dates: start: 20080101, end: 20180625
  33. PREVACID [Suspect]
     Active Substance: LANSOPRAZOLE
     Indication: GASTROOESOPHAGEAL REFLUX DISEASE
     Route: 065
  34. ASPIRIN. [Concomitant]
     Active Substance: ASPIRIN
  35. TUMS [Concomitant]
     Active Substance: CALCIUM CARBONATE
  36. CEFDINIR. [Concomitant]
     Active Substance: CEFDINIR
  37. FUROSEMIDE. [Concomitant]
     Active Substance: FUROSEMIDE
     Indication: RENAL DISORDER
  38. HYDRALAZINE [Concomitant]
     Active Substance: HYDRALAZINE HYDROCHLORIDE
     Indication: RENAL DISORDER
  39. NEXIUM [Suspect]
     Active Substance: ESOMEPRAZOLE MAGNESIUM
     Route: 048
  40. DARUNAVIR [Concomitant]
     Active Substance: DARUNAVIR
  41. LISINOPRIL. [Concomitant]
     Active Substance: LISINOPRIL
  42. DOXAZOSIN [Concomitant]
     Active Substance: DOXAZOSIN MESYLATE
  43. TYLENOL [Concomitant]
     Active Substance: ACETAMINOPHEN

REACTIONS (7)
  - Chronic kidney disease [Not Recovered/Not Resolved]
  - Renal injury [Unknown]
  - Hyperparathyroidism secondary [Unknown]
  - Chronic kidney disease-mineral and bone disorder [Unknown]
  - Renal failure [Unknown]
  - End stage renal disease [Not Recovered/Not Resolved]
  - Nephrogenic anaemia [Unknown]

NARRATIVE: CASE EVENT DATE: 2012
